FAERS Safety Report 17900666 (Version 1)
Quarter: 2020Q2

REPORT INFORMATION
  Report Type: Spontaneous
  Country: JP (occurrence: JP)
  Receive Date: 20200616
  Receipt Date: 20200616
  Transmission Date: 20200714
  Serious: Yes (Other)
  Sender: FDA-Public Use
  Company Number: JP-ASTRAZENECA-2020SE75289

PATIENT
  Age: 85 Year
  Sex: Female

DRUGS (1)
  1. CRESTOR [Suspect]
     Active Substance: ROSUVASTATIN CALCIUM
     Indication: HYPERLIPIDAEMIA
     Dosage: DOSE UNKNOWN
     Route: 048

REACTIONS (5)
  - Blood albumin decreased [Unknown]
  - Peripheral coldness [Unknown]
  - Low density lipoprotein decreased [Unknown]
  - Hypoaesthesia [Unknown]
  - Blood cholesterol decreased [Unknown]
